FAERS Safety Report 5145639-3 (Version None)
Quarter: 2006Q4

REPORT INFORMATION
  Report Type: 
  Country: None (occurrence: None)
  Receive Date: 20061101
  Receipt Date: 20061016
  Transmission Date: 20070319
  Serious: Yes (Other)
  Sender: FDA-Public Use
  Company Number: T06-USA-03771-01

PATIENT
  Age: 17 Year
  Sex: Female
  Weight: 77.1115 kg

DRUGS (10)
  1. ESCITALOPRAM (DOUBLE-BLIND) (ESCITALOPRAM) [Suspect]
     Indication: MAJOR DEPRESSION
     Dosage: 10 MG QD PO
     Route: 048
     Dates: start: 20060906, end: 20060913
  2. ESCITALOPRAM (DOUBLE-BLIND) (ESCITALOPRAM) [Suspect]
     Indication: MAJOR DEPRESSION
     Dosage: 20 MG QD PO
     Route: 048
     Dates: start: 20060803, end: 20060905
  3. ESCITALOPRAM (DOUBLE-BLIND) (ESCITALOPRAM) [Suspect]
     Indication: MAJOR DEPRESSION
     Dosage: 10 MG QD PO
     Route: 048
     Dates: start: 20060711, end: 20060802
  4. PLACEBO (DOUBLE-BLIND) (PLACEBO) [Suspect]
     Indication: MAJOR DEPRESSION
     Dosage: 10 MG QD PO
     Route: 048
     Dates: start: 20060906, end: 20060913
  5. PLACEBO (DOUBLE-BLIND) (PLACEBO) [Suspect]
     Indication: MAJOR DEPRESSION
     Dosage: 20 MG QD PO
     Route: 048
     Dates: start: 20060803, end: 20060905
  6. PLACEBO (DOUBLE-BLIND) (PLACEBO) [Suspect]
     Indication: MAJOR DEPRESSION
     Dosage: 10 MG QD PO
     Route: 048
     Dates: start: 20060711, end: 20060802
  7. PLACEBO (SINGLE-BLIND (PLACEBO) [Suspect]
     Indication: MAJOR DEPRESSION
     Dosage: 1 TABLET QD PO
     Route: 048
     Dates: start: 20060628, end: 20060710
  8. YAZ [Concomitant]
  9. IRON SUPPLEMENT (IRON) [Concomitant]
  10. SUDAFED 12 HOUR [Concomitant]

REACTIONS (2)
  - POISONING [None]
  - VICTIM OF SEXUAL ABUSE [None]
